FAERS Safety Report 10547863 (Version 1)
Quarter: 2014Q4

REPORT INFORMATION
  Report Type: Spontaneous
  Country: US (occurrence: None)
  Receive Date: 20141027
  Receipt Date: 20141027
  Transmission Date: 20150529
  Serious: Yes (Hospitalization)
  Sender: FDA-Public Use
  Company Number: None

PATIENT
  Age: 46 Year
  Sex: Male
  Weight: 125 kg

DRUGS (2)
  1. LENALIDOMIDE [Suspect]
     Active Substance: LENALIDOMIDE
     Indication: DEEP VEIN THROMBOSIS
     Route: 048
     Dates: start: 20130517
  2. LENALIDOMIDE [Suspect]
     Active Substance: LENALIDOMIDE
     Indication: PULMONARY EMBOLISM
     Route: 048
     Dates: start: 20130517

REACTIONS (3)
  - Deep vein thrombosis [None]
  - Musculoskeletal pain [None]
  - Pulmonary embolism [None]

NARRATIVE: CASE EVENT DATE: 20130606
